FAERS Safety Report 23877364 (Version 1)
Quarter: 2024Q2

REPORT INFORMATION
  Report Type: Report from Study
  Country: CA (occurrence: CA)
  Receive Date: 20240521
  Receipt Date: 20240521
  Transmission Date: 20240716
  Serious: Yes (Other)
  Sender: FDA-Public Use
  Company Number: CA-ABBVIE-5764949

PATIENT
  Age: 52 Year
  Sex: Male
  Weight: 82.7 kg

DRUGS (4)
  1. UPADACITINIB [Suspect]
     Active Substance: UPADACITINIB
     Indication: Axial spondyloarthritis
     Route: 048
     Dates: start: 20230516
  2. CELEBREX [Concomitant]
     Active Substance: CELECOXIB
     Indication: Axial spondyloarthritis
     Dosage: CONTINUOUS
     Route: 048
     Dates: start: 20221220
  3. PREDNISOLONE ACETATE [Concomitant]
     Active Substance: PREDNISOLONE ACETATE
     Indication: Uveitis
     Dosage: 1%
     Route: 031
     Dates: start: 20220920
  4. TYLENOL [Concomitant]
     Active Substance: ACETAMINOPHEN
     Indication: Axial spondyloarthritis
     Dosage: TIME INTERVAL: AS NECESSARY: 1 TABLET,
     Route: 048
     Dates: start: 20100420

REACTIONS (1)
  - Mantle cell lymphoma [Not Recovered/Not Resolved]

NARRATIVE: CASE EVENT DATE: 20240313
